FAERS Safety Report 6234284-4 (Version None)
Quarter: 2009Q2

REPORT INFORMATION
  Report Type: 
  Country: None (occurrence: None)
  Receive Date: 20090618
  Receipt Date: 20090609
  Transmission Date: 20091009
  Serious: Yes (Hospitalization)
  Sender: FDA-Public Use
  Company Number: BE-AMGEN-UK277867

PATIENT
  Sex: Male

DRUGS (5)
  1. AMG 655 [Suspect]
     Indication: COLORECTAL CANCER
     Route: 042
     Dates: start: 20080505
  2. PANITUMUMAB [Suspect]
     Indication: COLORECTAL CANCER
     Route: 042
     Dates: start: 20080505
  3. LANOXIN [Concomitant]
     Route: 048
  4. CORDARONE [Concomitant]
     Route: 048
  5. FRAXODI [Concomitant]
     Route: 058

REACTIONS (2)
  - CHILLS [None]
  - PYREXIA [None]
